FAERS Safety Report 7994249-9 (Version None)
Quarter: 2011Q4

REPORT INFORMATION
  Report Type: 
  Country: None (occurrence: None)
  Receive Date: 20111220
  Receipt Date: 20111024
  Transmission Date: 20120403
  Serious: Yes (Other)
  Sender: FDA-Public Use
  Company Number: US-NAPPMUNDI-USA-2011-0079810

PATIENT
  Sex: Male

DRUGS (1)
  1. OXYCONTIN [Suspect]
     Indication: PAIN
     Dosage: UNK
     Dates: start: 20031118, end: 20101218

REACTIONS (7)
  - FEELING ABNORMAL [None]
  - ANXIETY [None]
  - DRUG DEPENDENCE [None]
  - NERVOUS SYSTEM DISORDER [None]
  - NERVOUSNESS [None]
  - TREMOR [None]
  - SUICIDAL IDEATION [None]
